FAERS Safety Report 25352623 (Version 1)
Quarter: 2025Q2

REPORT INFORMATION
  Report Type: Spontaneous
  Country: US (occurrence: US)
  Receive Date: 20250523
  Receipt Date: 20250523
  Transmission Date: 20250717
  Serious: No
  Sender: Unknown Manufacturer
  Company Number: US-KINIKSA PHARMACEUTICALS LTD.-2025KPU001336

PATIENT

DRUGS (3)
  1. ARCALYST [Suspect]
     Active Substance: RILONACEPT
     Indication: Pericarditis
     Dosage: 160 MILLIGRAM, QW
     Dates: start: 202504
  2. COLCHICINE [Concomitant]
     Active Substance: COLCHICINE
     Indication: Product used for unknown indication
  3. ZEPBOUND [Concomitant]
     Active Substance: TIRZEPATIDE
     Indication: Product used for unknown indication
     Dates: start: 2022

REACTIONS (16)
  - Injection site erythema [Unknown]
  - Injection site pruritus [Unknown]
  - Injection site swelling [Unknown]
  - Hypersensitivity [Unknown]
  - Suffocation feeling [Unknown]
  - Weight increased [Unknown]
  - Illness [Unknown]
  - Insomnia [Unknown]
  - Headache [Unknown]
  - Wheezing [Unknown]
  - Cough [Unknown]
  - Pain [Unknown]
  - Malaise [Unknown]
  - Chest pain [Unknown]
  - Abdominal discomfort [Unknown]
  - Emotional disorder [Unknown]

NARRATIVE: CASE EVENT DATE: 20250401
